FAERS Safety Report 8516546-0 (Version None)
Quarter: 2012Q3

REPORT INFORMATION
  Report Type: 
  Country: None (occurrence: None)
  Receive Date: 20120711
  Receipt Date: 20120711
  Transmission Date: 20120928
  Serious: No
  Sender: FDA-Public Use
  Company Number: None

PATIENT
  Sex: Female

DRUGS (5)
  1. JANUVIA [Concomitant]
  2. AMLODIPINE [Concomitant]
  3. LOSARTAN POTASSIUM [Concomitant]
  4. PRAVASTATIN [Suspect]
     Dosage: 20 MG ONCE A DAY PO
     Route: 048
     Dates: start: 20120303, end: 20120626
  5. ZOLOFT [Concomitant]

REACTIONS (4)
  - MUSCLE SPASMS [None]
  - BACK PAIN [None]
  - ARTHRALGIA [None]
  - MUSCULOSKELETAL STIFFNESS [None]
